FAERS Safety Report 7679132-0 (Version None)
Quarter: 2011Q3

REPORT INFORMATION
  Report Type: 
  Country: None (occurrence: None)
  Receive Date: 20110812
  Receipt Date: 20110805
  Transmission Date: 20111222
  Serious: Yes (Hospitalization, Other)
  Sender: FDA-Public Use
  Company Number: PT-BAYER-2011-062602

PATIENT
  Age: 1 Year
  Sex: Male
  Weight: 8 kg

DRUGS (4)
  1. GADAVIST [Suspect]
     Indication: NUCLEAR MAGNETIC RESONANCE IMAGING BRAIN
  2. BUDESONIDE [Concomitant]
     Indication: BRONCHIOLITIS
     Route: 055
  3. GADAVIST [Suspect]
     Indication: COMPUTERISED TOMOGRAM THORAX
     Dosage: UNK
     Route: 042
     Dates: start: 20110719, end: 20110719
  4. ALBUTEROL [Concomitant]
     Indication: BRONCHIOLITIS
     Route: 055

REACTIONS (1)
  - BLOOD PRESSURE DECREASED [None]
